FAERS Safety Report 23921958 (Version 1)
Quarter: 2024Q2

REPORT INFORMATION
  Report Type: Spontaneous
  Country: US (occurrence: US)
  Receive Date: 20240531
  Receipt Date: 20240531
  Transmission Date: 20240716
  Serious: No
  Sender: FDA-Public Use
  Company Number: US-CELLTRION INC.-2024US005387

PATIENT

DRUGS (1)
  1. YUFLYMA [Suspect]
     Active Substance: ADALIMUMAB-AATY
     Indication: Colitis ulcerative
     Dosage: 80 MG INJECTED SUBCUTANEOUSLY ON DAY 1, 2 AND 15
     Route: 058
     Dates: start: 20240224

REACTIONS (1)
  - Injection site bruising [Not Recovered/Not Resolved]
